FAERS Safety Report 4816578-X (Version None)
Quarter: 2005Q4

REPORT INFORMATION
  Report Type: 
  Country: None (occurrence: None)
  Receive Date: 20051028
  Receipt Date: 20051019
  Transmission Date: 20060501
  Serious: Yes (Death, Hospitalization)
  Sender: FDA-Public Use
  Company Number: COV2-2005-00427

PATIENT
  Age: 70 Year
  Sex: Female
  Weight: 98 kg

DRUGS (3)
  1. FOSRENOL [Suspect]
     Indication: HYPERPHOSPHATAEMIA
     Dosage: 500 MG, 3X/DAY:  TID, ORAL
     Route: 048
     Dates: start: 20050614, end: 20050913
  2. THALIDOMIDE (THALIDOMIDE) [Concomitant]
  3. NEXIUM [Concomitant]

REACTIONS (14)
  - ANAEMIA [None]
  - ASTHENIA [None]
  - BLOOD PRESSURE DIASTOLIC DECREASED [None]
  - BRAIN NATRIURETIC PEPTIDE INCREASED [None]
  - CARDIAC ARREST [None]
  - CARDIAC FAILURE CONGESTIVE [None]
  - CONDITION AGGRAVATED [None]
  - CREATINE PHOSPHOKINASE DECREASED [None]
  - GASTRIC ULCER HAEMORRHAGE [None]
  - HYPOTENSION [None]
  - PANCYTOPENIA [None]
  - PULSE ABSENT [None]
  - RESTRICTIVE CARDIOMYOPATHY [None]
  - TROPONIN INCREASED [None]
